FAERS Safety Report 7476808-5 (Version None)
Quarter: 2011Q2

REPORT INFORMATION
  Report Type: 
  Country: None (occurrence: None)
  Receive Date: 20110512
  Receipt Date: 20110506
  Transmission Date: 20111010
  Serious: Yes (Other)
  Sender: FDA-Public Use
  Company Number: BR-ABBOTT-10P-020-0637180-00

PATIENT
  Sex: Female
  Weight: 112 kg

DRUGS (19)
  1. OMEPRAZOLE [Concomitant]
     Indication: GASTRIC DISORDER
     Route: 048
  2. OMEPRAZOLE [Concomitant]
     Indication: PROPHYLAXIS
  3. HUMIRA [Suspect]
     Indication: RHEUMATOID ARTHRITIS
     Route: 058
     Dates: start: 20100201
  4. BROMAZEPAM [Concomitant]
     Indication: ANXIOLYTIC THERAPY
     Route: 048
  5. BROMAZEPAM [Concomitant]
     Indication: SEDATIVE THERAPY
  6. NIMESULIDE/CYCLOBENZAPRINE [Concomitant]
     Indication: HEADACHE
     Dosage: 100MG/10MG
     Route: 048
  7. NIMESULIDE [Concomitant]
     Indication: DEPRESSION
  8. CYCLOBENZAPRINE [Concomitant]
     Indication: PAIN
     Route: 048
  9. BROMAZEPAM [Concomitant]
     Indication: SLEEP DISORDER THERAPY
  10. NIMESULIDE [Concomitant]
     Indication: PAIN
     Route: 048
  11. DIPROSPAN [Concomitant]
     Indication: PAIN
     Route: 048
  12. HUMIRA [Suspect]
     Route: 058
     Dates: start: 20100601
  13. CYCLOBENZAPRINE [Concomitant]
     Indication: DEPRESSION
  14. SERTRALINE [Concomitant]
     Indication: DEPRESSION
     Route: 048
  15. MELOXICAM [Concomitant]
     Indication: PAIN
     Route: 048
  16. VALSARTAN [Concomitant]
     Indication: HYPERTENSION
     Route: 048
  17. LOSARTAN [Concomitant]
     Indication: HYPERTENSION
     Route: 048
  18. METHOTREXATE [Concomitant]
     Indication: RHEUMATOID ARTHRITIS
     Route: 048
  19. PREDNISONE/MELOXICAM/RANITIDINE [Concomitant]
     Indication: RHEUMATOID ARTHRITIS
     Dosage: 7.5MG/15MG/200MG
     Route: 048

REACTIONS (9)
  - GAIT DISTURBANCE [None]
  - WEIGHT DECREASED [None]
  - IMPAIRED HEALING [None]
  - FOOT DEFORMITY [None]
  - ARTHROPATHY [None]
  - BLOOD TRIGLYCERIDES ABNORMAL [None]
  - WOUND [None]
  - SKIN ULCER [None]
  - ARTHRALGIA [None]
